FAERS Safety Report 4452778-9 (Version None)
Quarter: 2004Q3

REPORT INFORMATION
  Report Type: 
  Country: None (occurrence: None)
  Receive Date: 20040916
  Receipt Date: 20040903
  Transmission Date: 20050211
  Serious: Yes (Life-Threatening)
  Sender: FDA-Public Use
  Company Number: 237734

PATIENT
  Age: 74 Year
  Sex: Male
  Weight: 79 kg

DRUGS (9)
  1. NOVOMIX 30 FLEXPEN (INSULIN ASPART) SUSPENSION FOR INJECTION, 100U/ML [Suspect]
     Indication: INSULIN-REQUIRING TYPE II DIABETES MELLITUS
     Dosage: 26 IU, QD, PER ORAL
     Route: 048
     Dates: start: 20030716
  2. NOVONORM (REPAGLINIDE) TABLET, 1.0MG [Suspect]
     Indication: INSULIN-REQUIRING TYPE II DIABETES MELLITUS
     Dosage: 1 MG, 2X3, PER ORAL
     Route: 048
     Dates: start: 20030716
  3. METFORMIN HCL [Concomitant]
  4. HJERTEMAGNYL ^DAK^ (ACETYLSALICYLIC ACID, MAGNESIUM OXIDE HEAVY) [Concomitant]
  5. APRONAL (APRONAL) [Concomitant]
  6. NORVASC /DEN/(AMLODIPINE BESILATE) [Concomitant]
  7. SELO-ZOK (METOPROLOL SUCCINATE) [Concomitant]
  8. ZOCOR [Concomitant]
  9. METOPROLOL TARTRATE [Concomitant]

REACTIONS (4)
  - HYPERHIDROSIS [None]
  - HYPOGLYCAEMIA [None]
  - LOSS OF CONSCIOUSNESS [None]
  - TREMOR [None]
